FAERS Safety Report 8792646 (Version 2)
Quarter: 2013Q1

REPORT INFORMATION
  Report Type: Report from Study
  Country: JP (occurrence: JP)
  Receive Date: 20120918
  Receipt Date: 20130301
  Transmission Date: 20140127
  Serious: Yes (Hospitalization)
  Sender: FDA-Public Use
  Company Number: JP-JNJFOC-20120905720

PATIENT
  Age: 43 Year
  Sex: Male
  Weight: 60 kg

DRUGS (14)
  1. REMICADE [Suspect]
     Indication: COLITIS ULCERATIVE
     Dosage: 7TH DOSE OF INFLIXIMAB
     Route: 042
     Dates: start: 20110820
  2. REMICADE [Suspect]
     Indication: COLITIS ULCERATIVE
     Route: 042
     Dates: start: 20110626
  3. REMICADE [Suspect]
     Indication: COLITIS ULCERATIVE
     Route: 042
     Dates: start: 20110506
  4. REMICADE [Suspect]
     Indication: COLITIS ULCERATIVE
     Route: 042
     Dates: start: 20110307
  5. REMICADE [Suspect]
     Indication: COLITIS ULCERATIVE
     Route: 042
     Dates: start: 20110115
  6. REMICADE [Suspect]
     Indication: COLITIS ULCERATIVE
     Route: 042
     Dates: start: 20101218
  7. REMICADE [Suspect]
     Indication: COLITIS ULCERATIVE
     Route: 042
     Dates: start: 20101204
  8. LEUKERIN [Suspect]
     Indication: COLITIS ULCERATIVE
     Route: 048
  9. ASACOL [Concomitant]
     Indication: COLITIS ULCERATIVE
     Route: 048
     Dates: start: 20110820
  10. PENTASA [Concomitant]
     Indication: COLITIS ULCERATIVE
     Route: 054
     Dates: start: 20110910
  11. SALAZOPYRIN [Concomitant]
     Indication: COLITIS ULCERATIVE
     Route: 048
     Dates: end: 20110819
  12. BIO-THREE [Concomitant]
     Indication: COLITIS ULCERATIVE
     Dosage: DOSE: 3TAB
     Route: 048
  13. DEPAS [Concomitant]
     Route: 048
  14. ADRENOCORTICAL HORMONE [Concomitant]
     Indication: COLITIS ULCERATIVE
     Dosage: ADRENAL HORMONE PREPARATIONS
     Route: 065

REACTIONS (1)
  - Cytomegalovirus infection [Recovering/Resolving]
